FAERS Safety Report 8276436-8 (Version None)
Quarter: 2012Q2

REPORT INFORMATION
  Report Type: 
  Country: None (occurrence: None)
  Receive Date: 20120412
  Receipt Date: 20120409
  Transmission Date: 20120825
  Serious: No
  Sender: FDA-Public Use
  Company Number: US-PFIZER INC-2012089006

PATIENT
  Age: 80 Year
  Sex: Male

DRUGS (2)
  1. LIPITOR [Suspect]
     Dosage: 10 MG, UNK
  2. LIPITOR [Suspect]
     Dosage: 20 MG, UNK

REACTIONS (1)
  - MUSCLE DISORDER [None]
